FAERS Safety Report 9669191 (Version 3)
Quarter: 2014Q1

REPORT INFORMATION
  Report Type: Report from Study
  Country: US (occurrence: US)
  Receive Date: 20131105
  Receipt Date: 20140224
  Transmission Date: 20141002
  Serious: No
  Sender: FDA-Public Use
  Company Number: PHEH2013US021698

PATIENT
  Age: 55 Year
  Sex: Female
  Weight: 75.74 kg

DRUGS (10)
  1. GILENYA [Suspect]
     Indication: MULTIPLE SCLEROSIS
     Dosage: 0.5 MG, QD
     Route: 048
     Dates: start: 201304
  2. PREMPRO [Concomitant]
     Dosage: ESTROGENS CONJUGATED: 0.625 MG, MEDROXYPROGESTERONE ACETATE: 2.5 MG
  3. GEMFIBROZIL [Concomitant]
     Dosage: 600 MG, UNK
  4. CARBAMAZEPINE [Concomitant]
     Dosage: 200 MG, QID
  5. NAPROXEN [Concomitant]
     Dosage: 500 MG, UNK
  6. SERTRALINE [Concomitant]
     Dosage: 50 MG, QD
  7. OMEPRAZOLE [Concomitant]
     Dosage: 20 MG, QD
  8. DOCUSATE SODIUM [Concomitant]
     Dosage: 100 MG, UNK
  9. LOVASTATIN [Concomitant]
     Dosage: 40 MG, QD
  10. OXYBUTYNIN CHLORIDE [Concomitant]
     Dosage: 5 MG, QD

REACTIONS (4)
  - Wound [Recovered/Resolved]
  - Impaired healing [Recovered/Resolved]
  - Blister [Unknown]
  - Fall [Not Recovered/Not Resolved]
